FAERS Safety Report 24371480 (Version 2)
Quarter: 2024Q3

REPORT INFORMATION
  Report Type: Spontaneous
  Country: EG (occurrence: EG)
  Receive Date: 20240927
  Receipt Date: 20240930
  Transmission Date: 20241016
  Serious: Yes (Life-Threatening)
  Sender: PFIZER
  Company Number: EG-PFIZER INC-PV202400124717

PATIENT
  Age: 18 Day
  Sex: Female
  Weight: 2.4 kg

DRUGS (2)
  1. MEROPENEM [Suspect]
     Active Substance: MEROPENEM
     Indication: Sepsis
     Dosage: 30MG/KG (16.8 ML / 8 HR)
     Dates: start: 20240714
  2. VANCOMYCIN [Concomitant]
     Active Substance: VANCOMYCIN
     Dosage: UNK

REACTIONS (4)
  - Rash neonatal [Recovered/Resolved]
  - Bradycardia neonatal [Recovered/Resolved]
  - Bradypnoea [Recovered/Resolved]
  - Off label use [Unknown]

NARRATIVE: CASE EVENT DATE: 20240714
